FAERS Safety Report 14959058 (Version 9)
Quarter: 2024Q3

REPORT INFORMATION
  Report Type: Report from Study
  Country: FR (occurrence: FR)
  Receive Date: 20180531
  Receipt Date: 20240819
  Transmission Date: 20241016
  Serious: Yes (Hospitalization, Other)
  Sender: MYLAN
  Company Number: FR-TAKEDA-2017MPI007959

PATIENT
  Age: 62 Year
  Sex: Female
  Weight: 84 kg

DRUGS (10)
  1. BENDAMUSTINE HYDROCHLORIDE [Suspect]
     Active Substance: BENDAMUSTINE HYDROCHLORIDE
     Indication: Hodgkin^s disease
     Dosage: 170 MILLIGRAM, CYCLE
     Route: 042
     Dates: start: 20170209, end: 20170303
  2. GEMCITABINE [Suspect]
     Active Substance: GEMCITABINE
     Indication: Hodgkin^s disease
     Dosage: 1850 MILLIGRAM, CYCLE
     Route: 042
     Dates: start: 20170324, end: 20170711
  3. GEMCITABINE [Suspect]
     Active Substance: GEMCITABINE
     Dosage: 1850 MILLIGRAM, CYCLE
     Route: 042
     Dates: start: 20170328, end: 20170711
  4. ADCETRIS [Suspect]
     Active Substance: BRENTUXIMAB VEDOTIN
     Indication: Hodgkin^s disease
     Dosage: 150 MILLIGRAM, CYCLE
     Route: 042
     Dates: start: 20170209, end: 20180213
  5. ADCETRIS [Suspect]
     Active Substance: BRENTUXIMAB VEDOTIN
     Dosage: 135 MILLIGRAM, CYCLE
     Route: 042
     Dates: start: 20170331
  6. ADCETRIS [Suspect]
     Active Substance: BRENTUXIMAB VEDOTIN
     Dosage: 86 MILLIGRAM, CYCLE
     Route: 042
     Dates: start: 20180213
  7. VINORELBINE [Suspect]
     Active Substance: VINORELBINE TARTRATE
     Indication: Hodgkin^s disease
     Dosage: 37 MILLIGRAM, CYCLE
     Route: 042
     Dates: start: 20170324, end: 20170711
  8. DOXORUBICIN [Suspect]
     Active Substance: DOXORUBICIN
     Indication: Hodgkin^s disease
     Dosage: 28 MILLIGRAM, CYCLE
     Route: 042
     Dates: start: 20170324, end: 20170711
  9. DOXORUBICIN [Suspect]
     Active Substance: DOXORUBICIN
     Dosage: 28 MG, UNK
     Route: 065
     Dates: start: 20170324, end: 20170711
  10. NIVOLUMAB [Suspect]
     Active Substance: NIVOLUMAB
     Indication: Product used for unknown indication
     Dosage: UNK
     Route: 065

REACTIONS (12)
  - Toxic skin eruption [Recovered/Resolved]
  - Neuropathy peripheral [Recovered/Resolved]
  - Neurotoxicity [Recovered/Resolved]
  - General physical health deterioration [Recovered/Resolved]
  - Pneumocystis jirovecii pneumonia [Recovered/Resolved]
  - Neutropenia [Recovered/Resolved]
  - Nausea [Recovered/Resolved]
  - Weight decreased [Unknown]
  - Fatigue [Recovered/Resolved]
  - Vomiting [Recovered/Resolved]
  - Off label use [Unknown]
  - Product use in unapproved indication [Unknown]

NARRATIVE: CASE EVENT DATE: 20170209
